FAERS Safety Report 6969055-4 (Version None)
Quarter: 2010Q3

REPORT INFORMATION
  Report Type: 
  Country: None (occurrence: None)
  Receive Date: 20100907
  Receipt Date: 20100824
  Transmission Date: 20110219
  Serious: Yes (Other)
  Sender: FDA-Public Use
  Company Number: CA-MYLANLABS-2010S1015386

PATIENT
  Age: 11 Year
  Sex: Female

DRUGS (9)
  1. ONDANSETRON [Suspect]
     Indication: PROCEDURAL NAUSEA
     Route: 065
  2. SEVOFLURANE [Suspect]
     Indication: INDUCTION OF ANAESTHESIA
     Dosage: IN OXYGEN AND NITROUS OXIDE
     Route: 055
  3. SEVOFLURANE [Suspect]
     Indication: MAINTENANCE OF ANAESTHESIA
     Dosage: IN OXYGEN AND NITROUS OXIDE
     Route: 055
  4. SEVOFLURANE [Suspect]
     Dosage: IN 50% OXYGEN
     Route: 055
  5. SEVOFLURANE [Suspect]
     Dosage: IN 50% OXYGEN
     Route: 055
  6. REMIFENTANIL [Concomitant]
     Indication: ANAESTHESIA
     Route: 042
  7. ROCURONIUM BROMIDE [Concomitant]
     Indication: ANAESTHESIA
     Route: 042
  8. DEXAMETHASONE [Concomitant]
     Indication: PROCEDURAL NAUSEA
     Route: 065
  9. DIMENHYDRINATE [Concomitant]
     Indication: PROCEDURAL NAUSEA
     Route: 065

REACTIONS (1)
  - VENTRICULAR TACHYCARDIA [None]
